FAERS Safety Report 18405120 (Version 2)
Quarter: 2020Q4

REPORT INFORMATION
  Report Type: Spontaneous
  Country: IE (occurrence: IE)
  Receive Date: 20201020
  Receipt Date: 20201109
  Transmission Date: 20210114
  Serious: Yes (Other)
  Sender: FDA-Public Use
  Company Number: IE-NODEN PHARMA DAC-NOD-2020-000101

PATIENT

DRUGS (2)
  1. RASILEZ [Suspect]
     Active Substance: ALISKIREN
     Indication: PRODUCT USED FOR UNKNOWN INDICATION
     Dosage: UNK
     Route: 065
  2. TEKTURNA [Suspect]
     Active Substance: ALISKIREN HEMIFUMARATE
     Indication: PRODUCT USED FOR UNKNOWN INDICATION
     Dosage: UNK
     Route: 065
     Dates: start: 2020

REACTIONS (9)
  - Swelling [Unknown]
  - Spinal cord injury [Unknown]
  - Toxicity to various agents [Unknown]
  - Musculoskeletal stiffness [Unknown]
  - Intervertebral disc degeneration [Unknown]
  - Headache [Unknown]
  - Swelling face [Unknown]
  - Peripheral swelling [Unknown]
  - Pain [Unknown]
